FAERS Safety Report 8356150-0 (Version None)
Quarter: 2012Q2

REPORT INFORMATION
  Report Type: 
  Country: None (occurrence: None)
  Receive Date: 20120510
  Receipt Date: 20120501
  Transmission Date: 20120825
  Serious: Yes (Other)
  Sender: FDA-Public Use
  Company Number: JPI-P-020883

PATIENT
  Age: 55 Year
  Sex: Female

DRUGS (9)
  1. RAMIPRIL [Concomitant]
  2. CYMBALTA [Concomitant]
  3. BIAXIN [Concomitant]
  4. XYREM [Suspect]
     Indication: INSOMNIA
     Dosage: 9 GM (4.5 GM, 2 IN 1 D), ORAL, 4.5 GM (2.25 GM, 2 IN 1 D), ORAL
     Route: 048
     Dates: start: 20120301
  5. XYREM [Suspect]
     Indication: FIBROMYALGIA
     Dosage: 9 GM (4.5 GM, 2 IN 1 D), ORAL, 4.5 GM (2.25 GM, 2 IN 1 D), ORAL
     Route: 048
     Dates: start: 20120301
  6. XYREM [Suspect]
     Indication: INSOMNIA
     Dosage: 9 GM (4.5 GM, 2 IN 1 D), ORAL, 4.5 GM (2.25 GM, 2 IN 1 D), ORAL
     Route: 048
     Dates: start: 20100714, end: 20120301
  7. XYREM [Suspect]
     Indication: FIBROMYALGIA
     Dosage: 9 GM (4.5 GM, 2 IN 1 D), ORAL, 4.5 GM (2.25 GM, 2 IN 1 D), ORAL
     Route: 048
     Dates: start: 20100714, end: 20120301
  8. GABAPENTIN [Concomitant]
  9. ADALAT [Concomitant]

REACTIONS (10)
  - VOMITING [None]
  - EAR INFECTION [None]
  - TYMPANIC MEMBRANE PERFORATION [None]
  - HEART RATE INCREASED [None]
  - COUGH [None]
  - BLOOD PRESSURE INCREASED [None]
  - FATIGUE [None]
  - NASOPHARYNGITIS [None]
  - BRONCHITIS [None]
  - MIGRAINE [None]
